FAERS Safety Report 5266606-5 (Version None)
Quarter: 2007Q1

REPORT INFORMATION
  Report Type: 
  Country: None (occurrence: None)
  Receive Date: 20070315
  Receipt Date: 20070305
  Transmission Date: 20070707
  Serious: Yes (Other)
  Sender: FDA-Public Use
  Company Number: DZ-PFIZER INC-2007017952

PATIENT
  Age: 65 Year
  Sex: Male

DRUGS (7)
  1. CARDULAR [Suspect]
     Indication: BENIGN PROSTATIC HYPERPLASIA
     Route: 048
  2. AMLODIPINE [Concomitant]
  3. AMARYL [Concomitant]
  4. ASPEGIC 1000 [Concomitant]
  5. SINEMET [Concomitant]
  6. VITAMIN B1 AND B6 [Concomitant]
  7. TAHOR [Concomitant]
     Route: 048

REACTIONS (1)
  - TRANSIENT ISCHAEMIC ATTACK [None]
